FAERS Safety Report 13139777 (Version 3)
Quarter: 2018Q2

REPORT INFORMATION
  Report Type: Report from Study
  Country: JP (occurrence: JP)
  Receive Date: 20170123
  Receipt Date: 20180409
  Transmission Date: 20180711
  Serious: Yes (Life-Threatening, Hospitalization, Other)
  Sender: FDA-Public Use
  Company Number: JP-ACTELION-A-CH2017-148392

PATIENT
  Age: 38 Year
  Sex: Male

DRUGS (37)
  1. EPOPROSTENOL ACT [Suspect]
     Active Substance: EPOPROSTENOL
     Indication: PULMONARY ARTERIAL HYPERTENSION
     Dosage: 46.72 ?G/KG, PER MIN
     Route: 042
     Dates: end: 20160313
  2. GLUCONSAN K [Concomitant]
     Active Substance: POTASSIUM GLUCONATE
  3. PREDONINE [Concomitant]
     Active Substance: PREDNISOLONE
  4. CEFZON [Concomitant]
     Active Substance: CEFDINIR
  5. DOBUTAMINE [Concomitant]
     Active Substance: DOBUTAMINE\DOBUTAMINE HYDROCHLORIDE
  6. LASIX [Concomitant]
     Active Substance: FUROSEMIDE
  7. POTASSIUM CHLORIDE. [Concomitant]
     Active Substance: POTASSIUM CHLORIDE
  8. REVATIO [Suspect]
     Active Substance: SILDENAFIL CITRATE
     Indication: PULMONARY ARTERIAL HYPERTENSION
     Dosage: 10 MG, TID
     Route: 048
     Dates: start: 20160329, end: 20160404
  9. TRANEXAMIC ACID. [Concomitant]
     Active Substance: TRANEXAMIC ACID
  10. EPOPROSTENOL ACT [Suspect]
     Active Substance: EPOPROSTENOL
     Dosage: 53.8 ?G/KG, PER MIN
     Route: 042
     Dates: end: 20160515
  11. SAMSCA [Concomitant]
     Active Substance: TOLVAPTAN
  12. HANP [Concomitant]
     Active Substance: CARPERITIDE
  13. EPOPROSTENOL ACT [Suspect]
     Active Substance: EPOPROSTENOL
     Dosage: 55.3 ?G/KG, PER MIN
     Route: 042
     Dates: start: 20160516
  14. REVATIO [Suspect]
     Active Substance: SILDENAFIL CITRATE
     Dosage: 20 MG, TID
     Route: 048
     Dates: start: 20160419
  15. ADCIRCA [Concomitant]
     Active Substance: TADALAFIL
  16. LANSOPRAZOLE. [Concomitant]
     Active Substance: LANSOPRAZOLE
  17. CLINDAMYCIN HYDROCHLORIDE. [Concomitant]
     Active Substance: CLINDAMYCIN HYDROCHLORIDE
  18. EPOPROSTENOL ACT [Suspect]
     Active Substance: EPOPROSTENOL
     Dosage: 49.23 ?G/KG, PER MIN
     Route: 042
     Dates: start: 20160314
  19. EPOPROSTENOL ACT [Suspect]
     Active Substance: EPOPROSTENOL
     Dosage: 63 ?G/KG, PER MIN
     Route: 042
     Dates: end: 201608
  20. REVATIO [Suspect]
     Active Substance: SILDENAFIL CITRATE
     Dosage: 40-50MG PER DAY
     Route: 048
     Dates: start: 20160405, end: 20160410
  21. FEBURIC [Concomitant]
     Active Substance: FEBUXOSTAT
  22. BAKTAR [Concomitant]
     Active Substance: SULFAMETHOXAZOLE\TRIMETHOPRIM
  23. THYRADIN S [Concomitant]
     Active Substance: LEVOTHYROXINE SODIUM
  24. OXYGEN. [Concomitant]
     Active Substance: OXYGEN
  25. CEFAZOLIN NA [Concomitant]
     Active Substance: CEFAZOLIN SODIUM
  26. LUPRAC [Concomitant]
     Active Substance: TORSEMIDE
  27. OPSUMIT [Suspect]
     Active Substance: MACITENTAN
     Indication: PULMONARY ARTERIAL HYPERTENSION
     Dosage: 10 MG, QD
     Route: 048
     Dates: start: 20150731
  28. FUROSEMIDE. [Concomitant]
     Active Substance: FUROSEMIDE
  29. SPIRONOLACTONE. [Concomitant]
     Active Substance: SPIRONOLACTONE
  30. ADONA [Concomitant]
     Active Substance: CARBAZOCHROME SODIUM SULFONATE
  31. CEFACLOR. [Concomitant]
     Active Substance: CEFACLOR
  32. EPOPROSTENOL ACT [Suspect]
     Active Substance: EPOPROSTENOL
     Dosage: 62 ?G/KG, PER MIN
     Route: 042
  33. TRANSAMIN [Concomitant]
     Active Substance: TRANEXAMIC ACID
  34. PRIMPERAN [Concomitant]
     Active Substance: METOCLOPRAMIDE HYDROCHLORIDE
  35. BONALON [Concomitant]
     Active Substance: ALENDRONATE SODIUM
     Dosage: 35 MG, UNK
  36. UPTRAVI [Concomitant]
     Active Substance: SELEXIPAG
  37. TAKECAB [Concomitant]
     Active Substance: VONOPRAZAN FUMURATE

REACTIONS (21)
  - Right ventricular failure [Recovering/Resolving]
  - Thrombocytopenia [Recovering/Resolving]
  - Anaemia [Recovering/Resolving]
  - Haemoptysis [Recovered/Resolved]
  - Transfusion [Unknown]
  - Chills [Recovered/Resolved]
  - Syncope [Recovered/Resolved]
  - Pneumonia [Recovered/Resolved]
  - Brain natriuretic peptide increased [Recovering/Resolving]
  - Fluid overload [Recovering/Resolving]
  - Platelet transfusion [Unknown]
  - Concomitant disease aggravated [Recovering/Resolving]
  - Shock [Recovered/Resolved]
  - Adrenal insufficiency [Not Recovered/Not Resolved]
  - Sepsis [Recovered/Resolved]
  - Device related infection [Recovered/Resolved]
  - Rash [Recovered/Resolved]
  - Pyrexia [Recovered/Resolved]
  - Weight increased [Recovering/Resolving]
  - Catheter management [Unknown]
  - Dyspnoea [Recovering/Resolving]

NARRATIVE: CASE EVENT DATE: 201602
